FAERS Safety Report 8278022-2 (Version None)
Quarter: 2012Q2

REPORT INFORMATION
  Report Type: 
  Country: None (occurrence: None)
  Receive Date: 20120412
  Receipt Date: 20120404
  Transmission Date: 20120825
  Serious: Yes (Hospitalization)
  Sender: FDA-Public Use
  Company Number: US-PFIZER INC-2011232904

PATIENT
  Sex: Male
  Weight: 130 kg

DRUGS (3)
  1. NEXIUM [Concomitant]
     Indication: PROPHYLAXIS
     Dosage: 40 MG, 1X/DAY
     Route: 048
     Dates: start: 20100309, end: 20110923
  2. CELECOXIB [Suspect]
     Indication: OSTEOARTHRITIS
     Dosage: 100 MG, 2X/DAY
     Route: 048
     Dates: start: 20100309, end: 20110923
  3. BENICAR [Concomitant]
     Dosage: 40 MG, UNK
     Route: 048
     Dates: start: 20100407, end: 20111005

REACTIONS (2)
  - CROHN'S DISEASE [None]
  - GASTROINTESTINAL HAEMORRHAGE [None]
